FAERS Safety Report 17991021 (Version 2)
Quarter: 2020Q3

REPORT INFORMATION
  Report Type: Spontaneous
  Country: US (occurrence: US)
  Receive Date: 20200707
  Receipt Date: 20200731
  Transmission Date: 20201103
  Serious: Yes (Hospitalization, Other)
  Sender: FDA-Public Use
  Company Number: US-SA-2020SA173001

PATIENT

DRUGS (2)
  1. LEMTRADA [Suspect]
     Active Substance: ALEMTUZUMAB
     Dosage: UNK
     Route: 041
     Dates: start: 201909, end: 201909
  2. LEMTRADA [Suspect]
     Active Substance: ALEMTUZUMAB
     Dosage: UNK
     Route: 041
     Dates: start: 201809, end: 201809

REACTIONS (11)
  - Post procedural inflammation [Unknown]
  - Paraesthesia [Unknown]
  - Carpal tunnel syndrome [Unknown]
  - Hypoaesthesia [Unknown]
  - Atypical mycobacterial infection [Unknown]
  - Muscular weakness [Unknown]
  - Weight decreased [Unknown]
  - Pain [Unknown]
  - Discomfort [Unknown]
  - Purulent discharge [Unknown]
  - Neuralgia [Unknown]

NARRATIVE: CASE EVENT DATE: 202001
